FAERS Safety Report 8779582 (Version 1)
Quarter: 2012Q4

REPORT INFORMATION
  Report Type: 
  Country: CH (occurrence: CH)
  Receive Date: 20120912
  Receipt Date: 20120912
  Transmission Date: 20130627
  Serious: Yes (Death)
  Sender: FDA-Public Use
  Company Number: CH-BAYER-2012-094245

PATIENT
  Age: 93 Year
  Sex: Male

DRUGS (1)
  1. ASPIRIN CARDIO [Suspect]
     Dosage: 50 mg, QD
     Route: 048
     Dates: end: 20120211

REACTIONS (1)
  - Haemorrhage intracranial [Fatal]
